FAERS Safety Report 16796914 (Version 1)
Quarter: 2019Q3

REPORT INFORMATION
  Report Type: Report from Study
  Country: SA (occurrence: SA)
  Receive Date: 20190911
  Receipt Date: 20190911
  Transmission Date: 20191005
  Serious: Yes (Other)
  Sender: FDA-Public Use
  Company Number: SA-CELLTRION INC.-2019SA024765

PATIENT

DRUGS (5)
  1. DOXYCYCLINE. [Concomitant]
     Active Substance: DOXYCYCLINE
     Indication: BRUCELLOSIS
     Dosage: 200 MG (100 MG,1 IN 12 HR)
     Route: 048
     Dates: start: 20181203, end: 20190114
  2. CIPROFLOXACIN. [Concomitant]
     Active Substance: CIPROFLOXACIN
     Indication: BRUCELLOSIS
     Dosage: 1000 MG (500 MG, 1 IN 12 HR)
     Route: 048
     Dates: start: 20190815
  3. DOXYCYCLINE. [Concomitant]
     Active Substance: DOXYCYCLINE
     Dosage: 200 MG (100 MG,1 IN 12 HR)
     Route: 048
     Dates: start: 20190815
  4. REMSIMA [Suspect]
     Active Substance: INFLIXIMAB
     Indication: INFLAMMATORY BOWEL DISEASE
     Dosage: 1030 MG AT WEEKS 0, 2, 6, AND EVERY 8 WEEKS
     Route: 041
     Dates: start: 20190624
  5. STREPTOMYCIN [Concomitant]
     Active Substance: STREPTOMYCIN SULFATE
     Indication: BRUCELLOSIS
     Dosage: 2000 MG (1000 MG,1 IN 12 HR)
     Route: 048
     Dates: start: 20181203, end: 20181224

REACTIONS (3)
  - Overdose [Unknown]
  - Psoas abscess [Recovered/Resolved]
  - Intervertebral discitis [Recovered/Resolved]

NARRATIVE: CASE EVENT DATE: 20190727
